FAERS Safety Report 23561973 (Version 1)
Quarter: 2024Q1

REPORT INFORMATION
  Report Type: Spontaneous
  Country: US (occurrence: US)
  Receive Date: 20240225
  Receipt Date: 20240225
  Transmission Date: 20240410
  Serious: Yes (Other)
  Sender: FDA-Public Use
  Company Number: US-BRISTOL-MYERS SQUIBB COMPANY-2024-026100

PATIENT
  Age: 78 Year
  Sex: Male

DRUGS (2)
  1. REVLIMID [Suspect]
     Active Substance: LENALIDOMIDE
     Indication: Plasma cell myeloma
     Dosage: TAKE 1 CAPSULE BY MOUTH DAILY ON DAYS 1-21
     Route: 048
     Dates: start: 20200204
  2. MAGNESIUM CITRATE [Suspect]
     Active Substance: MAGNESIUM CITRATE
     Indication: Product used for unknown indication

REACTIONS (6)
  - Neck pain [Not Recovered/Not Resolved]
  - Pain [Not Recovered/Not Resolved]
  - Herpes zoster [Unknown]
  - Fatigue [Unknown]
  - Diarrhoea [Unknown]
  - Pruritus [Not Recovered/Not Resolved]
